APPROVED DRUG PRODUCT: DEXMETHYLPHENIDATE HYDROCHLORIDE
Active Ingredient: DEXMETHYLPHENIDATE HYDROCHLORIDE
Strength: 2.5MG
Dosage Form/Route: TABLET;ORAL
Application: A209468 | Product #001
Applicant: LANNETT CO INC
Approved: Sep 25, 2017 | RLD: No | RS: No | Type: DISCN